FAERS Safety Report 8604718-6 (Version None)
Quarter: 2012Q3

REPORT INFORMATION
  Report Type: 
  Country: None (occurrence: None)
  Receive Date: 20120820
  Receipt Date: 20120726
  Transmission Date: 20120928
  Serious: Yes (Hospitalization)
  Sender: FDA-Public Use
  Company Number: JP-SANOFI-AVENTIS-2012SA059110

PATIENT
  Age: 67 Year
  Sex: Female
  Weight: 63.6 kg

DRUGS (12)
  1. LASIX [Concomitant]
     Route: 048
  2. ASPIRIN [Suspect]
     Indication: ACUTE CORONARY SYNDROME
     Route: 048
  3. DILTIAZEM HCL [Concomitant]
     Route: 048
  4. HEPARIN [Concomitant]
     Dosage: DOSE: 500IU/HR
     Route: 042
     Dates: start: 20120711
  5. WARFARIN SODIUM [Suspect]
     Route: 048
  6. OLMESARTAN MEDOXOMIL [Concomitant]
     Indication: HYPERTENSION
     Route: 048
  7. PLAVIX [Suspect]
     Indication: ACUTE CORONARY SYNDROME
     Route: 048
  8. LANTUS [Concomitant]
     Indication: DIABETES MELLITUS
     Route: 058
     Dates: start: 20120713
  9. LASIX [Concomitant]
     Indication: DIURETIC THERAPY
     Route: 048
  10. LIXISENATIDE [Concomitant]
     Indication: TYPE 2 DIABETES MELLITUS
     Dates: start: 20110523
  11. NOVORAPID [Concomitant]
     Indication: DIABETES MELLITUS
     Route: 058
     Dates: start: 20120713
  12. ISOSORBIDE MONONITRATE [Concomitant]
     Route: 048

REACTIONS (1)
  - CHOLECYSTITIS [None]
